FAERS Safety Report 15450005 (Version 9)
Quarter: 2022Q2

REPORT INFORMATION
  Report Type: Spontaneous
  Country: US (occurrence: US)
  Receive Date: 20181001
  Receipt Date: 20220418
  Transmission Date: 20220721
  Serious: No
  Sender: FDA-Public Use
  Company Number: US-PFIZER INC-2018048582

PATIENT
  Age: 48 Year
  Sex: Female

DRUGS (5)
  1. LYRICA [Suspect]
     Active Substance: PREGABALIN
     Indication: Intervertebral disc displacement
     Dosage: 225 MG, 2X/DAY
     Route: 048
     Dates: end: 201809
  2. LYRICA [Suspect]
     Active Substance: PREGABALIN
     Indication: Back pain
  3. LYRICA [Suspect]
     Active Substance: PREGABALIN
     Indication: Radiculopathy
  4. LYRICA [Suspect]
     Active Substance: PREGABALIN
     Indication: Sciatica
  5. LYRICA [Suspect]
     Active Substance: PREGABALIN
     Indication: Pain

REACTIONS (4)
  - Pain [Unknown]
  - Headache [Unknown]
  - Weight increased [Not Recovered/Not Resolved]
  - Drug intolerance [Unknown]
